FAERS Safety Report 22226541 (Version 2)
Quarter: 2023Q2

REPORT INFORMATION
  Report Type: Spontaneous
  Country: US (occurrence: US)
  Receive Date: 20230419
  Receipt Date: 20230608
  Transmission Date: 20230721
  Serious: No
  Sender: FDA-Public Use
  Company Number: US-SA-SAC20230413000046

PATIENT
  Sex: Male

DRUGS (7)
  1. DUPIXENT [Suspect]
     Active Substance: DUPILUMAB
     Indication: Dermatitis atopic
     Dosage: 300 MG, QOW
     Route: 058
     Dates: start: 20220329
  2. DUPIXENT [Suspect]
     Active Substance: DUPILUMAB
     Indication: Eczema
  3. DUPIXENT [Suspect]
     Active Substance: DUPILUMAB
     Indication: Asthma
  4. ALBUTEROL SULFATE [Concomitant]
     Active Substance: ALBUTEROL SULFATE
     Dosage: UNK
  5. CLOBETASOL [Concomitant]
     Active Substance: CLOBETASOL
     Dosage: UNK
  6. TRIAMCINOLONE [Concomitant]
     Active Substance: TRIAMCINOLONE
     Dosage: UNK
  7. PREDNISONE [Concomitant]
     Active Substance: PREDNISONE
     Dosage: UNK

REACTIONS (7)
  - Sleep disorder [Unknown]
  - Asthma [Unknown]
  - Impaired quality of life [Unknown]
  - Dermatitis atopic [Unknown]
  - Rash [Unknown]
  - Discomfort [Unknown]
  - Product dose omission issue [Unknown]
